FAERS Safety Report 9728988 (Version 2)
Quarter: 2014Q1

REPORT INFORMATION
  Report Type: Spontaneous
  Country: US (occurrence: US)
  Receive Date: 20131204
  Receipt Date: 20140313
  Transmission Date: 20141002
  Serious: Yes (Other)
  Sender: FDA-Public Use
  Company Number: US-TEVA-448336USA

PATIENT
  Age: 27 Year
  Sex: Female
  Weight: 64.01 kg

DRUGS (10)
  1. PARAGARD 380A [Suspect]
     Indication: CONTRACEPTION
     Route: 015
     Dates: start: 201203, end: 20131127
  2. PARAGARD 380A [Suspect]
     Route: 015
     Dates: start: 20131127
  3. FLUOXETINE HYDROCHLORIDE [Concomitant]
     Indication: DEPRESSION
     Dosage: 10 MILLIGRAM DAILY;
     Route: 048
  4. MULTIVITAMINS [Concomitant]
  5. VITAMIN D [Concomitant]
     Route: 048
  6. VITAMIN B COMPLEX [Concomitant]
     Route: 048
  7. CALCIUM [Concomitant]
     Route: 048
  8. MAGNESIUM [Concomitant]
     Route: 048
  9. CARBONATES [Concomitant]
     Route: 048
  10. IODINE [Concomitant]
     Route: 048

REACTIONS (3)
  - Device dislocation [Recovered/Resolved]
  - Vaginal haemorrhage [Unknown]
  - Pelvic pain [Unknown]
